FAERS Safety Report 7321521-8 (Version None)
Quarter: 2011Q1

REPORT INFORMATION
  Report Type: 
  Country: None (occurrence: None)
  Receive Date: 20110228
  Receipt Date: 20100216
  Transmission Date: 20110831
  Serious: No
  Sender: FDA-Public Use
  Company Number: A0841244A

PATIENT
  Age: 21 Year
  Sex: Female

DRUGS (2)
  1. VALTREX [Suspect]
     Dosage: 1G THREE TIMES PER DAY
     Route: 048
     Dates: start: 20100115, end: 20100117
  2. NO CONCURRENT MEDICATION [Concomitant]

REACTIONS (9)
  - IMMOBILE [None]
  - VOMITING [None]
  - DISSOCIATIVE DISORDER [None]
  - PYREXIA [None]
  - DIZZINESS [None]
  - NAUSEA [None]
  - HEADACHE [None]
  - BODY TEMPERATURE [None]
  - LETHARGY [None]
